FAERS Safety Report 11219354 (Version 1)
Quarter: 2015Q2

REPORT INFORMATION
  Report Type: Spontaneous
  Country: US (occurrence: None)
  Receive Date: 20150624
  Receipt Date: 20150624
  Transmission Date: 20150821
  Serious: Yes (Life-Threatening, Hospitalization, Disabling, Other)
  Sender: FDA-Public Use
  Company Number: None

PATIENT
  Age: 32 Year
  Sex: Female
  Weight: 88.45 kg

DRUGS (8)
  1. PAROXETINE [Suspect]
     Active Substance: PAROXETINE\PAROXETINE HYDROCHLORIDE
     Indication: DEPRESSION
     Route: 048
     Dates: start: 199812, end: 201411
  2. WALKER [Concomitant]
  3. HOVERAROUND [Concomitant]
  4. ENSURE [Concomitant]
     Active Substance: AMINO ACIDS\DEXTROSE\ELECTROLYTES NOS\SOYBEAN OIL\VITAMINS
  5. BENADRYL [Concomitant]
     Active Substance: DIPHENHYDRAMINE HYDROCHLORIDE
  6. PAROXETINE [Suspect]
     Active Substance: PAROXETINE\PAROXETINE HYDROCHLORIDE
     Indication: ANXIETY
     Route: 048
     Dates: start: 199812, end: 201411
  7. METHADONE [Concomitant]
     Active Substance: METHADONE HYDROCHLORIDE
  8. ATIVAN [Concomitant]
     Active Substance: LORAZEPAM

REACTIONS (5)
  - Chorea [None]
  - Tremor [None]
  - Impaired driving ability [None]
  - Depression [None]
  - Dyskinesia [None]

NARRATIVE: CASE EVENT DATE: 200708
